FAERS Safety Report 11646921 (Version 2)
Quarter: 2021Q1

REPORT INFORMATION
  Report Type: Spontaneous
  Country: FR (occurrence: FR)
  Receive Date: 20151020
  Receipt Date: 20210204
  Transmission Date: 20210419
  Serious: Yes (Hospitalization, Disabling, Congenital Anomaly, Other)
  Sender: FDA-Public Use
  Company Number: FR-ABBVIE-15P-056-1484357-00

PATIENT
  Age: 0 Day
  Sex: Male

DRUGS (1)
  1. DEPAKINE [Suspect]
     Active Substance: VALPROATE SODIUM
     Indication: MATERNAL EXPOSURE TIMING UNSPECIFIED
     Route: 064

REACTIONS (33)
  - Strabismus congenital [Unknown]
  - Memory impairment [Unknown]
  - Overweight [Unknown]
  - Learning disability [Unknown]
  - Visuospatial deficit [Unknown]
  - Strabismus [Unknown]
  - Antisocial personality disorder [Unknown]
  - Fatigue [Unknown]
  - Ocular discomfort [Unknown]
  - Cognitive disorder [Unknown]
  - Mobility decreased [Unknown]
  - Stress [Unknown]
  - Hand-eye coordination impaired [Unknown]
  - Disturbance in attention [Unknown]
  - Foetal anticonvulsant syndrome [Unknown]
  - Respiratory syncytial virus bronchiolitis [Unknown]
  - Foetal exposure during pregnancy [Unknown]
  - Speech disorder developmental [Unknown]
  - Impulsive behaviour [Unknown]
  - Hypermetropia [Unknown]
  - Asthenopia [Unknown]
  - Anger [Unknown]
  - Learning disorder [Unknown]
  - Aggression [Unknown]
  - Joint laxity [Unknown]
  - Anxiety [Unknown]
  - Dysgraphia [Unknown]
  - Hypertonia [Unknown]
  - Blindness [Unknown]
  - Eye disorder [Unknown]
  - Dyspraxia [Unknown]
  - Neuromyopathy [Unknown]
  - Psychomotor hyperactivity [Unknown]

NARRATIVE: CASE EVENT DATE: 20061113
